FAERS Safety Report 6627910-9 (Version None)
Quarter: 2010Q1

REPORT INFORMATION
  Report Type: 
  Country: None (occurrence: None)
  Receive Date: 20100311
  Receipt Date: 20090312
  Transmission Date: 20100710
  Serious: No
  Sender: FDA-Public Use
  Company Number: A0772998A

PATIENT
  Age: 66 Year
  Sex: Female

DRUGS (2)
  1. NICORETTE [Suspect]
     Dates: start: 20090304
  2. MARIJUANA [Concomitant]

REACTIONS (4)
  - DRY THROAT [None]
  - ORAL DISCOMFORT [None]
  - OROPHARYNGEAL PAIN [None]
  - THROAT IRRITATION [None]
